FAERS Safety Report 7778113-6 (Version None)
Quarter: 2011Q3

REPORT INFORMATION
  Report Type: 
  Country: None (occurrence: None)
  Receive Date: 20110926
  Receipt Date: 20110919
  Transmission Date: 20111222
  Serious: Yes (Other)
  Sender: FDA-Public Use
  Company Number: US-ALEXION-A201101429

PATIENT
  Age: 23 Year
  Sex: Female

DRUGS (10)
  1. PHENYTOIN [Concomitant]
     Dosage: UNK
  2. SOLIRIS [Suspect]
     Indication: PAROXYSMAL NOCTURNAL HAEMOGLOBINURIA
     Dosage: UNK
     Route: 042
     Dates: start: 20110911
  3. CIPROFLOXACIN [Concomitant]
     Dosage: UNK
  4. LOVENOX [Concomitant]
     Dosage: UNK
  5. KEPPRA [Concomitant]
     Dosage: UNK
  6. MEROPENEM [Concomitant]
     Dosage: UNK
  7. MYCOPHENOLATE MOFETIL (CELLCEPT) [Concomitant]
     Dosage: UNK
  8. DIURIL [Concomitant]
     Dosage: UNK
  9. CLONIDINE [Concomitant]
     Dosage: UNK
     Route: 062
  10. ZANTAC [Concomitant]
     Dosage: UNK

REACTIONS (1)
  - HALLUCINATION [None]
